FAERS Safety Report 25849825 (Version 1)
Quarter: 2025Q3

REPORT INFORMATION
  Report Type: Other
  Country: CA (occurrence: CA)
  Receive Date: 20250926
  Receipt Date: 20250926
  Transmission Date: 20251020
  Serious: Yes (Other)
  Sender: APOTEX
  Company Number: CA-PGRTD-E2B_08070361

PATIENT
  Age: 48 Year
  Sex: Female

DRUGS (11)
  1. DOXYCYCLINE [Suspect]
     Active Substance: DOXYCYCLINE
     Indication: Acne cystic
     Route: 065
  2. METHOTREXATE [Suspect]
     Active Substance: METHOTREXATE
     Indication: Product used for unknown indication
     Route: 065
  3. ACTEMRA [Suspect]
     Active Substance: TOCILIZUMAB
     Indication: Rheumatoid arthritis
     Route: 065
  4. FOLIC ACID [Concomitant]
     Active Substance: FOLIC ACID
     Route: 065
  5. LATUDA [Concomitant]
     Active Substance: LURASIDONE HYDROCHLORIDE
     Route: 065
  6. LUMIGAN [Concomitant]
     Active Substance: BIMATOPROST
     Route: 065
  7. REMERON [Concomitant]
     Active Substance: MIRTAZAPINE
     Route: 065
  8. SIMPONI [Concomitant]
     Active Substance: GOLIMUMAB
     Route: 065
  9. SPIRONOLACTONE [Concomitant]
     Active Substance: SPIRONOLACTONE
     Route: 065
  10. TOVIAZ [Concomitant]
     Active Substance: FESOTERODINE FUMARATE
     Route: 065
  11. XARELTO [Concomitant]
     Active Substance: RIVAROXABAN
     Route: 065

REACTIONS (7)
  - Joint stiffness [Unknown]
  - Acne cystic [Unknown]
  - Hypertransaminasaemia [Unknown]
  - Pulmonary embolism [Unknown]
  - Juvenile idiopathic arthritis [Unknown]
  - Foot deformity [Unknown]
  - Arthralgia [Unknown]
